FAERS Safety Report 6649726-X (Version None)
Quarter: 2010Q1

REPORT INFORMATION
  Report Type: 
  Country: None (occurrence: None)
  Receive Date: 20100324
  Receipt Date: 20100324
  Transmission Date: 20100710
  Serious: Yes (Other)
  Sender: FDA-Public Use
  Company Number: None

PATIENT
  Age: 7 Year
  Sex: Female
  Weight: 20.4119 kg

DRUGS (1)
  1. SINGULAIR [Suspect]
     Indication: ASTHMA
     Dosage: 5 MG DAILY PO MONTH
     Route: 048
     Dates: start: 20100201, end: 20100307

REACTIONS (10)
  - ABNORMAL BEHAVIOUR [None]
  - ASTHMA [None]
  - CRYING [None]
  - DISTURBANCE IN ATTENTION [None]
  - EMOTIONAL DISORDER [None]
  - ENURESIS [None]
  - MOOD ALTERED [None]
  - NIGHTMARE [None]
  - SCREAMING [None]
  - SOMNAMBULISM [None]
